FAERS Safety Report 14066610 (Version 2)
Quarter: 2018Q3

REPORT INFORMATION
  Report Type: Report from Study
  Country: US (occurrence: US)
  Receive Date: 20171009
  Receipt Date: 20180820
  Transmission Date: 20181010
  Serious: Yes (Death, Hospitalization, Other)
  Sender: FDA-Public Use
  Company Number: US-BAYER-2017-109653

PATIENT
  Age: 54 Year
  Sex: Male

DRUGS (6)
  1. ALBUTEROL SULFATE. [Concomitant]
     Active Substance: ALBUTEROL SULFATE
  2. NEXAVAR [Suspect]
     Active Substance: SORAFENIB
     Indication: HEPATOCELLULAR CARCINOMA
     Dosage: 400 MG, BID
     Route: 048
  3. NEXAVAR [Suspect]
     Active Substance: SORAFENIB
     Indication: NEOPLASM MALIGNANT
     Dosage: 400 MG, BID ON AN EMPTY STOMACH 1 HOUR BEFORE OR 2 HOURS AFTER EATING
     Route: 048
  4. NEXAVAR [Suspect]
     Active Substance: SORAFENIB
     Indication: HEPATOCELLULAR CARCINOMA
     Dosage: 400 MG, BID
     Route: 048
     Dates: end: 20180209
  5. ENOXAPARIN SODIUM. [Concomitant]
     Active Substance: ENOXAPARIN SODIUM
  6. NEXAVAR [Suspect]
     Active Substance: SORAFENIB
     Indication: HEPATOCELLULAR CARCINOMA
     Dosage: 400 MG, BID ON AN EMPTY STOMACH 1 HOUR BEFORE OR 2 HOURS AFTER EATING
     Route: 048
     Dates: start: 201705

REACTIONS (15)
  - Thrombosis [None]
  - Pulmonary thrombosis [Unknown]
  - Skin lesion [Not Recovered/Not Resolved]
  - Palmar-plantar erythrodysaesthesia syndrome [Recovered/Resolved]
  - Tooth fracture [None]
  - Pulmonary pain [None]
  - Skin fissures [Not Recovered/Not Resolved]
  - Procedural pain [Not Recovered/Not Resolved]
  - Death [Fatal]
  - Osteomyelitis [None]
  - Blister [None]
  - Haematochezia [None]
  - Blister [Recovered/Resolved]
  - Blister [Recovering/Resolving]
  - Coagulopathy [None]

NARRATIVE: CASE EVENT DATE: 201705
